FAERS Safety Report 7419527-3 (Version None)
Quarter: 2011Q2

REPORT INFORMATION
  Report Type: 
  Country: None (occurrence: None)
  Receive Date: 20110418
  Receipt Date: 20110408
  Transmission Date: 20111010
  Serious: No
  Sender: FDA-Public Use
  Company Number: PHFR2011GB02479

PATIENT
  Sex: Male

DRUGS (3)
  1. ALBUTEROL SULFATE AUTOHALER [Concomitant]
     Dosage: UNK DF, UNK
  2. AMOXICILLIN [Concomitant]
     Dosage: UNK DF, UNK
  3. TASIGNA [Suspect]
     Dosage: UNK DF, UNK

REACTIONS (1)
  - LOWER RESPIRATORY TRACT INFECTION [None]
